FAERS Safety Report 7655677-4 (Version None)
Quarter: 2011Q3

REPORT INFORMATION
  Report Type: 
  Country: None (occurrence: None)
  Receive Date: 20110728
  Receipt Date: 20110720
  Transmission Date: 20111222
  Serious: Yes (Other)
  Sender: FDA-Public Use
  Company Number: 2011SP033935

PATIENT
  Age: 21 Year
  Sex: Female

DRUGS (1)
  1. NEXPLANON [Suspect]
     Indication: CONTRACEPTION
     Dosage: 68 MG; ;SBDE
     Route: 059
     Dates: start: 20110501, end: 20110620

REACTIONS (2)
  - INFECTION [None]
  - PYOGENIC GRANULOMA [None]
